FAERS Safety Report 15754570 (Version 3)
Quarter: 2019Q1

REPORT INFORMATION
  Report Type: Report from Study
  Country: None (occurrence: IT)
  Receive Date: 20181224
  Receipt Date: 20190219
  Transmission Date: 20190417
  Serious: Yes (Disabling)
  Sender: FDA-Public Use
  Company Number: IT-ABBVIE-18S-083-2599056-00

PATIENT
  Age: 74 Year
  Sex: Male

DRUGS (1)
  1. DUODOPA [Suspect]
     Active Substance: CARBIDOPA\LEVODOPA
     Indication: PARKINSON^S DISEASE
     Dosage: MD: 10+3 CR: 5,2 ED: 3
     Route: 050
     Dates: start: 20160926

REACTIONS (4)
  - General physical health deterioration [Unknown]
  - Dysphagia [Unknown]
  - Weight decreased [Recovering/Resolving]
  - Senile dementia [Unknown]

NARRATIVE: CASE EVENT DATE: 201811
